FAERS Safety Report 7540773-2 (Version None)
Quarter: 2011Q2

REPORT INFORMATION
  Report Type: 
  Country: None (occurrence: None)
  Receive Date: 20110610
  Receipt Date: 20110531
  Transmission Date: 20111010
  Serious: Yes (Hospitalization)
  Sender: FDA-Public Use
  Company Number: NL-ROCHE-779982

PATIENT
  Age: 67 Year
  Sex: Male

DRUGS (3)
  1. AVASTIN [Suspect]
     Dosage: COMPLETED 3 CYCLE OF TREATMENT
     Route: 042
     Dates: end: 20110501
  2. OXALIPLATIN [Suspect]
     Dosage: COMPLETED 3 CYCLES OF THE TREATMENT
     Route: 042
  3. XELODA [Suspect]
     Dosage: COMPLETED 3 CYCLES OF THE TREATMENT
     Route: 048

REACTIONS (2)
  - GASTROINTESTINAL PERFORATION [None]
  - PERITONITIS [None]
